FAERS Safety Report 9173778 (Version 2)
Quarter: 2013Q2

REPORT INFORMATION
  Report Type: Other
  Country: US (occurrence: US)
  Receive Date: 20130320
  Receipt Date: 20130430
  Transmission Date: 20140414
  Serious: Yes (Death, Hospitalization, Other)
  Sender: FDA-Public Use
  Company Number: US-VERTEX PHARMACEUTICALS INC.-2013-003627

PATIENT
  Sex: Female
  Weight: 54 kg

DRUGS (10)
  1. INCIVEK [Suspect]
     Indication: HEPATITIS C
     Dosage: UNK
     Route: 048
     Dates: start: 20120501, end: 20120701
  2. INTERFERON [Suspect]
     Indication: HEPATITIS C
     Dosage: UNK
     Dates: start: 20120501, end: 20120815
  3. RIBAVIRIN [Suspect]
     Indication: HEPATITIS C
     Dosage: UNK
     Dates: start: 20120501, end: 20120815
  4. TRIAMCINOLONE ACETONIDE [Concomitant]
     Indication: PRURITUS
  5. VENTOLIN HFA [Concomitant]
     Indication: WHEEZING
  6. QVAR [Concomitant]
     Indication: ASTHMA
  7. ZOLPIDEM TARTRATE [Concomitant]
     Indication: POOR QUALITY SLEEP
  8. CITALOPRAM HYDROBROMIDE [Concomitant]
     Indication: DEPRESSION
  9. OXYCODONE HCL [Concomitant]
     Indication: PAIN IN EXTREMITY
  10. ATRIPLA [Concomitant]
     Indication: HIV INFECTION
     Dosage: UNK
     Dates: start: 201105

REACTIONS (16)
  - Metastatic neoplasm [Fatal]
  - Respiratory failure [Unknown]
  - Right ventricular failure [Unknown]
  - Pulmonary hypertension [Unknown]
  - Bone marrow failure [Unknown]
  - Deep vein thrombosis [Unknown]
  - Interstitial lung disease [Unknown]
  - Malignant pleural effusion [Unknown]
  - Pneumonia [Unknown]
  - Dyspnoea [Unknown]
  - Weight decreased [Unknown]
  - Off label use [Unknown]
  - Fatigue [Unknown]
  - Oedema peripheral [Unknown]
  - Anaemia [Unknown]
  - Nausea [Unknown]
